FAERS Safety Report 21846555 (Version 1)
Quarter: 2023Q1

REPORT INFORMATION
  Report Type: Report from Study
  Country: US (occurrence: US)
  Receive Date: 20230111
  Receipt Date: 20230111
  Transmission Date: 20230418
  Serious: No
  Sender: FDA-Public Use
  Company Number: US-ABBVIE-4229830

PATIENT
  Sex: Male

DRUGS (1)
  1. RINVOQ [Suspect]
     Active Substance: UPADACITINIB
     Indication: Product used for unknown indication
     Route: 048

REACTIONS (6)
  - Tendon pain [Recovering/Resolving]
  - Nephrolithiasis [Unknown]
  - Procedural pain [Unknown]
  - Acne cystic [Recovered/Resolved]
  - Tendon rupture [Recovering/Resolving]
  - Impaired healing [Recovering/Resolving]
